FAERS Safety Report 25439306 (Version 2)
Quarter: 2025Q2

REPORT INFORMATION
  Report Type: Report from Study
  Country: US (occurrence: US)
  Receive Date: 20250616
  Receipt Date: 20250626
  Transmission Date: 20250716
  Serious: Yes (Other)
  Sender: AMGEN
  Company Number: US-AMGEN-USASL2025065648

PATIENT
  Age: 60 Year
  Sex: Male

DRUGS (4)
  1. TEPEZZA [Suspect]
     Active Substance: TEPROTUMUMAB-TRBW
     Indication: Toxic goitre
     Dosage: UNK, Q3WK  (FIRST INFUSION)
     Route: 040
     Dates: start: 20250328
  2. TEPEZZA [Suspect]
     Active Substance: TEPROTUMUMAB-TRBW
     Dosage: UNK, Q3WK (THIRD INFUSION)
     Route: 040
     Dates: start: 2025
  3. TEPEZZA [Suspect]
     Active Substance: TEPROTUMUMAB-TRBW
     Dosage: UNK, Q3WK (FOURTH INFUSION)
     Route: 040
     Dates: start: 2025
  4. TEPEZZA [Suspect]
     Active Substance: TEPROTUMUMAB-TRBW
     Dosage: UNK, Q3WK (FIFTH INFUSION)
     Route: 040
     Dates: start: 2025

REACTIONS (11)
  - Urinary retention [Recovered/Resolved]
  - Dry skin [Unknown]
  - Diarrhoea [Unknown]
  - Fatigue [Unknown]
  - Dysphagia [Unknown]
  - Bowel movement irregularity [Unknown]
  - Vomiting [Unknown]
  - Heart rate decreased [Unknown]
  - Hypertension [Recovered/Resolved]
  - Pruritus [Unknown]
  - Paraesthesia [Unknown]

NARRATIVE: CASE EVENT DATE: 20250101
